FAERS Safety Report 7548125-6 (Version None)
Quarter: 2011Q2

REPORT INFORMATION
  Report Type: 
  Country: None (occurrence: None)
  Receive Date: 20110615
  Receipt Date: 20110601
  Transmission Date: 20111010
  Serious: Yes (Hospitalization, Other)
  Sender: FDA-Public Use
  Company Number: US-ELI_LILLY_AND_COMPANY-US200907004597

PATIENT
  Sex: Female

DRUGS (6)
  1. FORTEO [Suspect]
     Indication: OSTEOPOROSIS
     Dosage: 20 UG, QD
     Dates: start: 20090501
  2. PAXIL [Concomitant]
     Dosage: 75 MG, QD
  3. FORTEO [Suspect]
     Dosage: 20 UG, QD
     Dates: end: 20110531
  4. SIMVASTATIN [Concomitant]
     Dosage: 40 MG, QD
  5. OXYBUTYNIN [Concomitant]
     Indication: URINARY TRACT DISORDER
  6. LAMOTRIGINE [Concomitant]
     Dosage: 200 MG, BID

REACTIONS (4)
  - JOINT SPRAIN [None]
  - JOINT SWELLING [None]
  - FALL [None]
  - ARTHRALGIA [None]
